FAERS Safety Report 5691881-2 (Version None)
Quarter: 2008Q2

REPORT INFORMATION
  Report Type: 
  Country: None (occurrence: None)
  Receive Date: 20080401
  Receipt Date: 20080401
  Transmission Date: 20081010
  Serious: Yes (Hospitalization)
  Sender: FDA-Public Use
  Company Number: None

PATIENT
  Age: 84 Year
  Sex: Male
  Weight: 63.9572 kg

DRUGS (11)
  1. ERLOTINIB 150 MG [Suspect]
     Indication: NON-SMALL CELL LUNG CANCER
     Dosage: 150 MG DAILY 047 PO
     Route: 048
     Dates: start: 20080128, end: 20080225
  2. BEVACIZUMAB 15 MG/KG [Suspect]
     Indication: NON-SMALL CELL LUNG CANCER
     Dosage: 15 MG/KG EVERY 3 WEEKS 041 IV
     Route: 042
     Dates: start: 20080128
  3. BEVACIZUMAB 15 MG/KG [Suspect]
     Indication: NON-SMALL CELL LUNG CANCER
     Dosage: 15 MG/KG EVERY 3 WEEKS 041 IV
     Route: 042
     Dates: start: 20080218
  4. HYTRIN [Concomitant]
  5. ZOCOR [Concomitant]
  6. NEURONTIN [Concomitant]
  7. GEMFIBROZIL [Concomitant]
  8. NORTRIPTYLINE HCL [Concomitant]
  9. GLYBURIDE AND METFORMIN HCL [Concomitant]
  10. ZYLOPRIM [Concomitant]
  11. PRESERVISION AREDS [Concomitant]

REACTIONS (9)
  - ABDOMINAL PAIN UPPER [None]
  - ANAEMIA [None]
  - ANOREXIA [None]
  - BACK PAIN [None]
  - CONSTIPATION [None]
  - FAILURE TO THRIVE [None]
  - MALIGNANT NEOPLASM PROGRESSION [None]
  - RASH [None]
  - WEIGHT DECREASED [None]
